FAERS Safety Report 10279424 (Version 1)
Quarter: 2014Q3

REPORT INFORMATION
  Report Type: Spontaneous
  Country: US (occurrence: FR)
  Receive Date: 20140707
  Receipt Date: 20140707
  Transmission Date: 20150326
  Serious: Yes (Other)
  Sender: FDA-Public Use
  Company Number: 2014SP003842

PATIENT
  Age: 73 Year
  Sex: Female

DRUGS (7)
  1. CETUXIMAB [Suspect]
     Active Substance: CETUXIMAB
     Indication: BONE NEOPLASM
     Route: 042
     Dates: start: 20140227
  2. CETUXIMAB [Suspect]
     Active Substance: CETUXIMAB
     Indication: BONE NEOPLASM
     Route: 042
     Dates: start: 20140506
  3. CISPLATIN. [Concomitant]
     Active Substance: CISPLATIN
     Dates: start: 20140227
  4. FLUOROURACIL. [Suspect]
     Active Substance: FLUOROURACIL
     Indication: BONE NEOPLASM
     Route: 042
     Dates: start: 20140227
  5. FLUOROURACIL. [Suspect]
     Active Substance: FLUOROURACIL
     Indication: BONE NEOPLASM
     Route: 042
     Dates: start: 20140313
  6. FLUOROURACIL. [Suspect]
     Active Substance: FLUOROURACIL
     Indication: BONE NEOPLASM
     Dates: start: 20140520
  7. CETUXIMAB [Suspect]
     Active Substance: CETUXIMAB
     Indication: BONE NEOPLASM
     Dates: start: 20140530

REACTIONS (4)
  - Hypophagia [Recovering/Resolving]
  - Stomatitis [Recovered/Resolved]
  - Herpes simplex [Unknown]
  - Aphthous stomatitis [Recovered/Resolved]

NARRATIVE: CASE EVENT DATE: 20140306
